FAERS Safety Report 15944266 (Version 2)
Quarter: 2019Q1

REPORT INFORMATION
  Report Type: Report from Study
  Country: None (occurrence: BR)
  Receive Date: 20190211
  Receipt Date: 20190217
  Transmission Date: 20190417
  Serious: Yes (Hospitalization, Other)
  Sender: FDA-Public Use
  Company Number: BR-ABBVIE-19K-020-2654075-00

PATIENT
  Age: 23 Year
  Sex: Male
  Weight: 98 kg

DRUGS (2)
  1. VITAMIN B-COMPLEX [Concomitant]
     Active Substance: DEXPANTHENOL\NIACINAMIDE\PYRIDOXINE HYDROCHLORIDE\RIBOFLAVIN 5^-PHOSPHATE SODIUM\THIAMINE HYDROCHLORIDE
     Indication: PRODUCT USED FOR UNKNOWN INDICATION
  2. HUMIRA [Suspect]
     Active Substance: ADALIMUMAB
     Indication: CROHN^S DISEASE
     Route: 058
     Dates: start: 20140728, end: 20181022

REACTIONS (8)
  - Dyspepsia [Unknown]
  - Decreased appetite [Unknown]
  - Nausea [Unknown]
  - Neck mass [Not Recovered/Not Resolved]
  - Abdominal mass [Unknown]
  - Bone disorder [Unknown]
  - Hodgkin^s disease [Not Recovered/Not Resolved]
  - Mediastinal mass [Unknown]

NARRATIVE: CASE EVENT DATE: 20181019
